FAERS Safety Report 7815719-X (Version None)
Quarter: 2011Q4

REPORT INFORMATION
  Report Type: 
  Country: None (occurrence: None)
  Receive Date: 20111014
  Receipt Date: 20110609
  Transmission Date: 20120403
  Serious: Yes (Other)
  Sender: FDA-Public Use
  Company Number: CA-SANOFI-AVENTIS-2011SA036769

PATIENT
  Age: 57 Year
  Sex: Female

DRUGS (5)
  1. LANTUS [Suspect]
     Dosage: DOSE:26 UNIT(S)
     Route: 058
     Dates: start: 20110513, end: 20110524
  2. SYNTHROID [Concomitant]
     Indication: THYROID DISORDER
     Route: 048
  3. GLICLAZIDE [Concomitant]
  4. HYDROCHLOROTHIAZIDE [Concomitant]
     Indication: BLOOD PRESSURE
     Route: 048
  5. MICARDIS [Concomitant]
     Indication: BLOOD PRESSURE
     Route: 048

REACTIONS (1)
  - MUSCLE SPASMS [None]
